FAERS Safety Report 8933991 (Version 2)
Quarter: 2013Q1

REPORT INFORMATION
  Report Type: Spontaneous
  Country: US (occurrence: US)
  Receive Date: 20121129
  Receipt Date: 20130111
  Transmission Date: 20140127
  Serious: No
  Sender: FDA-Public Use
  Company Number: US-PFIZER INC-2012298489

PATIENT
  Age: 73 Year
  Sex: Female
  Weight: 93 kg

DRUGS (4)
  1. ADVIL [Suspect]
     Indication: ARTHRALGIA
     Dosage: UNK, 4X/DAY
     Dates: end: 2012
  2. ASPIRIN [Suspect]
     Indication: ARTHRALGIA
     Dosage: 325 MG, UNK
     Dates: end: 2012
  3. HYDROCHLOROTHIAZIDE/TRIAMTERENE [Concomitant]
     Dosage: 75/50 MG, UNK
  4. CALCIUM [Concomitant]
     Dosage: UNK

REACTIONS (2)
  - Ear infection [Unknown]
  - Urticaria [Recovered/Resolved]
